FAERS Safety Report 8359111-0 (Version None)
Quarter: 2012Q2

REPORT INFORMATION
  Report Type: 
  Country: None (occurrence: None)
  Receive Date: 20120515
  Receipt Date: 20120508
  Transmission Date: 20120825
  Serious: No
  Sender: FDA-Public Use
  Company Number: US-BIOGENIDEC-2012BI016224

PATIENT
  Age: 53 Year
  Sex: Female

DRUGS (3)
  1. AVONEX [Suspect]
     Indication: MULTIPLE SCLEROSIS
     Route: 030
  2. AVONEX [Suspect]
     Route: 030
     Dates: start: 19990901
  3. AVONEX [Suspect]
     Route: 030
     Dates: start: 20000701

REACTIONS (4)
  - OEDEMA PERIPHERAL [None]
  - INJECTION SITE MASS [None]
  - PYREXIA [None]
  - MYALGIA [None]
